FAERS Safety Report 10572375 (Version 2)
Quarter: 2014Q4

REPORT INFORMATION
  Report Type: Spontaneous
  Country: IT (occurrence: IT)
  Receive Date: 20141109
  Receipt Date: 20141125
  Transmission Date: 20150529
  Serious: Yes (Hospitalization)
  Sender: FDA-Public Use
  Company Number: IT-BRISTOL-MYERS SQUIBB COMPANY-21550207

PATIENT
  Age: 85 Year
  Sex: Male

DRUGS (6)
  1. ACETYLSALICYLIC ACID [Concomitant]
     Active Substance: ASPIRIN
  2. METFORMIN HCL [Suspect]
     Active Substance: METFORMIN HYDROCHLORIDE
     Indication: DIABETES MELLITUS
     Route: 048
     Dates: start: 20130120, end: 20140126
  3. OMEPRAZOLE. [Concomitant]
     Active Substance: OMEPRAZOLE
  4. ZOFENOPRIL CALCIUM+HCTZ [Concomitant]
     Dosage: 30 MG + 12.5 MG FILM COATED TABLET
  5. FUROSEMIDE. [Concomitant]
     Active Substance: FUROSEMIDE
  6. NOVONORM [Suspect]
     Active Substance: REPAGLINIDE
     Indication: DIABETES MELLITUS
     Route: 048
     Dates: start: 20130120, end: 20140126

REACTIONS (5)
  - Vertigo [Recovering/Resolving]
  - Sopor [Recovering/Resolving]
  - Diabetic metabolic decompensation [Recovering/Resolving]
  - Asthenia [Recovering/Resolving]
  - Dysarthria [Recovering/Resolving]

NARRATIVE: CASE EVENT DATE: 20140126
